FAERS Safety Report 7288090-2 (Version None)
Quarter: 2011Q1

REPORT INFORMATION
  Report Type: 
  Country: None (occurrence: None)
  Receive Date: 20110208
  Receipt Date: 20110208
  Transmission Date: 20110831
  Serious: Yes (Hospitalization)
  Sender: FDA-Public Use
  Company Number: None

PATIENT
  Age: 79 Year
  Sex: Male
  Weight: 85 kg

DRUGS (1)
  1. VALPROIC ACID [Suspect]
     Dosage: 400 MG BID PO
     Route: 048
     Dates: start: 20090422, end: 20110128

REACTIONS (1)
  - PANCREATITIS [None]
